FAERS Safety Report 9139985 (Version 2)
Quarter: 2013Q2

REPORT INFORMATION
  Report Type: Spontaneous
  Country: IT (occurrence: IT)
  Receive Date: 20130305
  Receipt Date: 20130507
  Transmission Date: 20140414
  Serious: Yes (Other)
  Sender: FDA-Public Use
  Company Number: IT-PFIZER INC-2013067577

PATIENT
  Age: 81 Year
  Sex: Male

DRUGS (8)
  1. RAMIPRIL [Suspect]
     Indication: HYPERTENSION
     Dosage: 5 MG (1 TABLET), 1X/DAY
     Route: 048
  2. XATRAL [Interacting]
     Indication: BENIGN PROSTATIC HYPERPLASIA
     Dosage: 10 MG, 1X/DAY
     Route: 048
  3. LUCEN [Concomitant]
     Indication: ABDOMINAL HERNIA
     Dosage: UNK
  4. LEVOPRAID [Concomitant]
     Indication: ANXIETY
     Dosage: UNK
  5. LEVOPRAID [Concomitant]
     Indication: DEPRESSION
  6. PLAVIX [Concomitant]
     Dosage: UNK
  7. SPIRIVA [Concomitant]
     Indication: CHRONIC OBSTRUCTIVE PULMONARY DISEASE
     Dosage: UNK
  8. RIOPAN [Concomitant]
     Indication: ABDOMINAL HERNIA
     Dosage: UNK

REACTIONS (2)
  - Drug interaction [Unknown]
  - Syncope [Recovered/Resolved]
